FAERS Safety Report 24722072 (Version 4)
Quarter: 2025Q2

REPORT INFORMATION
  Report Type: Spontaneous
  Country: DE (occurrence: DE)
  Receive Date: 20241211
  Receipt Date: 20250610
  Transmission Date: 20250717
  Serious: Yes (Hospitalization, Other)
  Sender: SANDOZ
  Company Number: DE-002147023-NVSC2021DE059273

PATIENT
  Sex: Female

DRUGS (18)
  1. ACEMETACIN [Suspect]
     Active Substance: ACEMETACIN
     Indication: Psoriatic arthropathy
     Route: 065
     Dates: start: 20170601, end: 20200306
  2. ACEMETACIN [Suspect]
     Active Substance: ACEMETACIN
     Dosage: 90 MG, QW
     Route: 065
     Dates: start: 20200415, end: 20201015
  3. COSENTYX [Suspect]
     Active Substance: SECUKINUMAB
     Indication: Psoriatic arthropathy
     Dosage: 150 MG, QMO
     Route: 042
     Dates: start: 20191209
  4. COSENTYX [Suspect]
     Active Substance: SECUKINUMAB
     Dosage: 300 MG, Q4W
     Route: 065
     Dates: start: 20191209
  5. ETORICOXIB [Suspect]
     Active Substance: ETORICOXIB
     Indication: Product used for unknown indication
     Route: 065
     Dates: start: 20200307, end: 20200415
  6. ETORICOXIB [Suspect]
     Active Substance: ETORICOXIB
     Indication: Product used for unknown indication
     Dosage: 60 MG, QD
     Route: 065
     Dates: start: 20221114
  7. ETORICOXIB [Suspect]
     Active Substance: ETORICOXIB
     Dosage: 60 MG, QD
     Route: 065
     Dates: start: 20210415
  8. ETORICOXIB [Suspect]
     Active Substance: ETORICOXIB
     Route: 065
     Dates: start: 20210113
  9. METHOTREXATE [Suspect]
     Active Substance: METHOTREXATE
     Dosage: 10 MG, QW
     Route: 065
     Dates: start: 20130101
  10. METHOTREXATE [Suspect]
     Active Substance: METHOTREXATE
     Dosage: 10 MG, QW
     Route: 065
     Dates: start: 20211005
  11. METHOTREXATE [Suspect]
     Active Substance: METHOTREXATE
     Dosage: 10 MG, QW
     Route: 065
     Dates: start: 20221219
  12. METHOTREXATE [Suspect]
     Active Substance: METHOTREXATE
     Indication: Psoriatic arthropathy
     Dosage: 15 MG, QW
     Route: 058
     Dates: start: 20221219
  13. METHOTREXATE [Suspect]
     Active Substance: METHOTREXATE
     Route: 059
     Dates: start: 20221219
  14. Etoriconio [Concomitant]
     Route: 065
     Dates: start: 20200307, end: 20200415
  15. Etoriconio [Concomitant]
     Route: 065
     Dates: start: 20210415
  16. Etoriconio [Concomitant]
     Indication: Product used for unknown indication
     Route: 065
     Dates: start: 20210113
  17. METAMIZOLE [Concomitant]
     Active Substance: METAMIZOLE
     Indication: Product used for unknown indication
     Route: 065
  18. MIRTAZAPINE [Concomitant]
     Active Substance: MIRTAZAPINE
     Indication: Product used for unknown indication
     Route: 065

REACTIONS (22)
  - Psoriatic arthropathy [Recovered/Resolved]
  - Meniscus injury [Recovered/Resolved]
  - Fibromyalgia [Recovered/Resolved]
  - Spinal osteoarthritis [Unknown]
  - Pain [Recovered/Resolved]
  - Influenza like illness [Unknown]
  - Rotator cuff syndrome [Unknown]
  - Duodenitis [Unknown]
  - Gastrooesophageal reflux disease [Unknown]
  - Hiatus hernia [Unknown]
  - Eye inflammation [Unknown]
  - Nasopharyngitis [Unknown]
  - Osteoarthritis [Unknown]
  - Hip deformity [Unknown]
  - COVID-19 [Unknown]
  - Road traffic accident [Unknown]
  - COVID-19 [Unknown]
  - Diarrhoea [Unknown]
  - Gastrointestinal infection [Unknown]
  - Cough [Unknown]
  - Plantar fasciitis [Unknown]
  - Osteoarthritis [Unknown]

NARRATIVE: CASE EVENT DATE: 20200430
